FAERS Safety Report 7819543-3 (Version None)
Quarter: 2011Q4

REPORT INFORMATION
  Report Type: 
  Country: None (occurrence: None)
  Receive Date: 20111018
  Receipt Date: 20110208
  Transmission Date: 20120403
  Serious: No
  Sender: FDA-Public Use
  Company Number: US-ASTRAZENECA-2011SE07197

PATIENT
  Age: 43 Year
  Sex: Female
  Weight: 97.5 kg

DRUGS (1)
  1. SYMBICORT [Suspect]
     Dosage: 160-4.5 TWO TIMES A DAY
     Route: 055

REACTIONS (1)
  - WEIGHT DECREASED [None]
